FAERS Safety Report 5840320-7 (Version None)
Quarter: 2008Q3

REPORT INFORMATION
  Report Type: 
  Country: None (occurrence: None)
  Receive Date: 20080807
  Receipt Date: 20080728
  Transmission Date: 20090109
  Serious: Yes (Hospitalization)
  Sender: FDA-Public Use
  Company Number: 2008001440

PATIENT
  Age: 59 Year
  Sex: Male
  Weight: 75.3 kg

DRUGS (7)
  1. ERLOTINIB (ERLOTINIB) (TABLET) (ERLOTINIB) [Suspect]
     Indication: NON-SMALL CELL LUNG CANCER
     Dosage: (150 MG, QD), ORAL
     Route: 048
     Dates: start: 20080409, end: 20080507
  2. PF-3512676 (INJECTION) [Suspect]
     Dosage: (15.06 MG, ONCE WEEKLY)
     Dates: start: 20080409, end: 20080430
  3. METOPROLOL TARTRATE [Concomitant]
  4. LOPERAMIDE HYDROCHLORIDE [Concomitant]
  5. PAREGORIC (PAREGORIC) [Concomitant]
  6. VITAMIN B6 [Concomitant]
  7. IRON (IRON) [Concomitant]

REACTIONS (11)
  - ANAEMIA [None]
  - CHEST PAIN [None]
  - COUGH [None]
  - DISEASE PROGRESSION [None]
  - HYPERHIDROSIS [None]
  - PYREXIA [None]
  - RENAL CYST [None]
  - RENAL FAILURE [None]
  - RHINORRHOEA [None]
  - SELF-MEDICATION [None]
  - SNEEZING [None]
